FAERS Safety Report 9294655 (Version 1)
Quarter: 2013Q2

REPORT INFORMATION
  Report Type: Spontaneous
  Country: US (occurrence: None)
  Receive Date: 20130516
  Receipt Date: 20130516
  Transmission Date: 20140414
  Serious: Yes (Hospitalization)
  Sender: FDA-Public Use
  Company Number: None

PATIENT
  Age: 63 Year
  Sex: Male

DRUGS (9)
  1. ZYTIGA [Suspect]
     Indication: PROSTATE CANCER
     Route: 048
     Dates: start: 20130405, end: 20130425
  2. SIMVASTATIN [Concomitant]
  3. LISINOPRIL [Concomitant]
  4. FAMOTIDINE [Concomitant]
  5. ALLOPURINOL [Concomitant]
  6. PROCHLORPERARINE [Concomitant]
  7. GABAPENTIN [Concomitant]
  8. LORAZEPAM [Concomitant]
  9. TYLENOL [Concomitant]

REACTIONS (5)
  - Fatigue [None]
  - Hypoaesthesia [None]
  - Disease progression [None]
  - Dyspnoea [None]
  - Cranial nerve disorder [None]
